FAERS Safety Report 9163123 (Version 1)
Quarter: 2013Q1

REPORT INFORMATION
  Report Type: Spontaneous
  Country: US (occurrence: None)
  Receive Date: 20130313
  Receipt Date: 20130313
  Transmission Date: 20140127
  Serious: Yes (Disabling)
  Sender: FDA-Public Use
  Company Number: None

PATIENT
  Age: 30 Year
  Sex: Female
  Weight: 61.24 kg

DRUGS (1)
  1. Z-PAK [Suspect]
     Indication: PHARYNGITIS STREPTOCOCCAL
     Dates: start: 20120803, end: 20120805

REACTIONS (5)
  - Palpitations [None]
  - Insomnia [None]
  - Anxiety [None]
  - Nausea [None]
  - Basedow^s disease [None]
